FAERS Safety Report 6313208-5 (Version None)
Quarter: 2009Q3

REPORT INFORMATION
  Report Type: 
  Country: None (occurrence: None)
  Receive Date: 20090818
  Receipt Date: 20090813
  Transmission Date: 20100115
  Serious: Yes (Other)
  Sender: FDA-Public Use
  Company Number: US-GILEAD-2009-0022686

PATIENT
  Sex: Female

DRUGS (8)
  1. LETAIRIS [Suspect]
     Indication: PULMONARY ARTERIAL HYPERTENSION
     Route: 048
     Dates: start: 20090522
  2. REVATIO [Concomitant]
     Dates: end: 20090616
  3. AVAPRO [Concomitant]
  4. METFORMIN [Concomitant]
  5. ACTONEL [Concomitant]
  6. VITAMIN D [Concomitant]
  7. PROTONIX [Concomitant]
  8. VYTORIN [Concomitant]

REACTIONS (2)
  - DYSPNOEA [None]
  - OXYGEN SATURATION DECREASED [None]
